FAERS Safety Report 4607910-0 (Version None)
Quarter: 2005Q1

REPORT INFORMATION
  Report Type: 
  Country: None (occurrence: None)
  Receive Date: 20050310
  Receipt Date: 20050303
  Transmission Date: 20050727
  Serious: Yes (Death)
  Sender: FDA-Public Use
  Company Number: FR-2005-003046

PATIENT
  Age: 50 Year
  Sex: Male

DRUGS (2)
  1. BETAFERON (INTERFERON BETA-1B) INJECTION, 250UG [Suspect]
     Indication: MULTIPLE SCLEROSIS
     Dosage: 250 UG, EVERY 2 D, SUBCUTANEOUS
     Route: 058
     Dates: start: 20030601, end: 20040101
  2. PARACETAMOL [Concomitant]

REACTIONS (1)
  - SUDDEN DEATH [None]
